FAERS Safety Report 5473522-2 (Version None)
Quarter: 2007Q3

REPORT INFORMATION
  Report Type: 
  Country: None (occurrence: None)
  Receive Date: 20070830
  Receipt Date: 20070508
  Transmission Date: 20080115
  Serious: Yes (Other)
  Sender: FDA-Public Use
  Company Number: 2007038869

PATIENT
  Age: 6 Year
  Sex: Male
  Weight: 26 kg

DRUGS (3)
  1. ZARONTIN SYRUP [Suspect]
     Indication: CONVULSION
     Dosage: 250 MG (5 ML, 1 IN 1 D), ORAL
     Route: 048
     Dates: start: 20070504
  2. BENADRYL [Suspect]
     Indication: HYPERSENSITIVITY
  3. ALL OTHER THERAPEUTIC PRODUCTS (ALL OTHER THERAPEUTIC PRODUCTS) [Concomitant]

REACTIONS (2)
  - INSOMNIA [None]
  - PSYCHOMOTOR HYPERACTIVITY [None]
